FAERS Safety Report 19514682 (Version 1)
Quarter: 2021Q3

REPORT INFORMATION
  Report Type: Spontaneous
  Country: JP (occurrence: JP)
  Receive Date: 20210709
  Receipt Date: 20210709
  Transmission Date: 20211014
  Serious: Yes (Other)
  Sender: FDA-Public Use
  Company Number: JP-PFIZER INC-2021805011

PATIENT
  Age: 64 Year
  Sex: Male

DRUGS (1)
  1. METHYLPREDNISOLONE SODIUM SUCCINATE. [Suspect]
     Active Substance: METHYLPREDNISOLONE SODIUM SUCCINATE
     Dosage: UNK
     Dates: start: 20210620, end: 20210621

REACTIONS (8)
  - Hypoxia [Unknown]
  - Headache [Unknown]
  - Malaise [Unknown]
  - Somnolence [Unknown]
  - Condition aggravated [Unknown]
  - Loss of consciousness [Unknown]
  - Chest X-ray abnormal [Unknown]
  - Condition aggravated [Unknown]

NARRATIVE: CASE EVENT DATE: 202106
